FAERS Safety Report 4506136-9 (Version None)
Quarter: 2004Q4

REPORT INFORMATION
  Report Type: 
  Country: None (occurrence: None)
  Receive Date: 20041025
  Receipt Date: 20030903
  Transmission Date: 20050328
  Serious: Yes (Other)
  Sender: FDA-Public Use
  Company Number: US-JNJFOC-20030901298

PATIENT
  Age: 70 Year
  Sex: Female
  Weight: 68.0396 kg

DRUGS (3)
  1. REMICADE [Suspect]
     Indication: RHEUMATOID ARTHRITIS
     Dosage: INTRAVENOUS
     Route: 042
     Dates: start: 20030101
  2. METHOTREXATE [Concomitant]
  3. AMOXICILLIN (AMOXCILLIN) [Concomitant]

REACTIONS (3)
  - HEADACHE [None]
  - MEMORY IMPAIRMENT [None]
  - SINUSITIS FUNGAL [None]
